FAERS Safety Report 14183422 (Version 1)
Quarter: 2017Q4

REPORT INFORMATION
  Report Type: Spontaneous
  Country: IT (occurrence: IT)
  Receive Date: 20171113
  Receipt Date: 20171113
  Transmission Date: 20180321
  Serious: Yes (Other)
  Sender: FDA-Public Use
  Company Number: IT-PFIZER INC-2017482994

PATIENT
  Age: 35 Year
  Sex: Male

DRUGS (3)
  1. LYRICA [Suspect]
     Active Substance: PREGABALIN
     Indication: ADJUSTMENT DISORDER WITH ANXIETY
     Dosage: 300 MG, TOTAL
     Route: 048
  2. XANAX [Suspect]
     Active Substance: ALPRAZOLAM
     Indication: ADJUSTMENT DISORDER WITH ANXIETY
     Dosage: 2.5 MG, TOTAL
     Route: 048
  3. METADONE CLORIDRATO AFOM [Suspect]
     Active Substance: METHADONE HYDROCHLORIDE
     Dosage: 50 MG, TOTAL
     Route: 048

REACTIONS (4)
  - Overdose [Unknown]
  - Sopor [Unknown]
  - Drug abuse [Recovering/Resolving]
  - Miosis [Unknown]

NARRATIVE: CASE EVENT DATE: 20170608
